FAERS Safety Report 11420168 (Version 3)
Quarter: 2015Q4

REPORT INFORMATION
  Report Type: Spontaneous
  Country: US (occurrence: US)
  Receive Date: 20150826
  Receipt Date: 20151119
  Transmission Date: 20160304
  Serious: Yes (Death, Hospitalization, Other)
  Sender: FDA-Public Use
  Company Number: US-PFIZER INC-2015191193

PATIENT
  Age: 76 Year
  Sex: Female

DRUGS (9)
  1. XELJANZ [Suspect]
     Active Substance: TOFACITINIB CITRATE
     Dosage: UNK
  2. XELJANZ [Suspect]
     Active Substance: TOFACITINIB CITRATE
     Dosage: UNK
  3. METHOTREXATE [Concomitant]
     Active Substance: METHOTREXATE
     Indication: RHEUMATOID ARTHRITIS
     Dosage: 10 MG, WEEKLY
  4. XELJANZ [Suspect]
     Active Substance: TOFACITINIB CITRATE
     Indication: RHEUMATOID ARTHRITIS
     Dosage: 5 MG, 2X/DAY
     Route: 048
     Dates: start: 20150428, end: 20150507
  5. PRAVASTATIN [Concomitant]
     Active Substance: PRAVASTATIN\PRAVASTATIN SODIUM
     Dosage: 40 MG, DAILY
  6. ETODOLAC. [Concomitant]
     Active Substance: ETODOLAC
     Dosage: 400 MG 1 OR 2 DAILY
  7. PREDNISONE. [Concomitant]
     Active Substance: PREDNISONE
     Indication: RHEUMATOID ARTHRITIS
     Dosage: 5 MG, DAILY
  8. GABAPENTINE [Concomitant]
     Active Substance: GABAPENTIN
     Dosage: 300 MG 1 OR 3 DAILY
  9. FOLIC ACID. [Concomitant]
     Active Substance: FOLIC ACID
     Dosage: 800 MG, DAILY

REACTIONS (6)
  - Pyrexia [Unknown]
  - Respiratory rate increased [Unknown]
  - Painful respiration [Unknown]
  - Interstitial lung disease [Fatal]
  - Dyspnoea [Unknown]
  - Chills [Unknown]

NARRATIVE: CASE EVENT DATE: 201505
